FAERS Safety Report 20469707 (Version 2)
Quarter: 2022Q2

REPORT INFORMATION
  Report Type: Report from Study
  Country: US (occurrence: US)
  Receive Date: 20220214
  Receipt Date: 20220513
  Transmission Date: 20220721
  Serious: No
  Sender: FDA-Public Use
  Company Number: US-PHARMACOVIGILANCE-US-KAD-21-00296

PATIENT
  Age: 34 Year
  Sex: Male
  Weight: 81.7 kg

DRUGS (28)
  1. REZUROCK [Suspect]
     Active Substance: BELUMOSUDIL
     Indication: Chronic graft versus host disease
     Dosage: 200 MILLIGRAM, BID
     Route: 048
     Dates: start: 20211130
  2. MEGACE [Concomitant]
     Active Substance: MEGESTROL ACETATE
     Indication: Decreased appetite
     Dosage: 800 MILLIGRAM, QD (20 ML OF 40 MG/ML SUSPENSION)
     Route: 048
  3. VORICONAZOLE [Concomitant]
     Active Substance: VORICONAZOLE
     Indication: Product used for unknown indication
     Dosage: 200 MILLIGRAM, Q12H
     Route: 048
  4. TRAZODONE [Concomitant]
     Active Substance: TRAZODONE HYDROCHLORIDE
     Indication: Sleep disorder
     Dosage: 50 MILLIGRAM, PRN, 1-2 TABLETS
     Route: 048
  5. PROGRAF [Concomitant]
     Active Substance: TACROLIMUS
     Indication: Chronic graft versus host disease
     Dosage: 0.5 MILLIGRAM, Q12H
     Route: 048
  6. MYLICONE [Concomitant]
     Indication: Flatulence
     Dosage: UNK
     Route: 048
  7. SENNA-S [Concomitant]
     Active Substance: DOCUSATE SODIUM\SENNOSIDES
     Indication: Product used for unknown indication
     Dosage: 8.8 MILLIGRAM, BID
     Route: 048
  8. ZOVIRAX [Concomitant]
     Active Substance: ACYCLOVIR
     Indication: Prophylaxis
     Dosage: 800 MILLIGRAM, BID
     Route: 048
  9. ZOVIRAX [Concomitant]
     Active Substance: ACYCLOVIR
     Indication: Viral infection
  10. CALCIUM CARB-CHOLECALCIFEROL [Concomitant]
     Indication: Vitamin D deficiency
     Dosage: UNK600-400 MG/UNIT, 1 TABLET, BID
     Route: 048
  11. CALCIUM CARB-CHOLECALCIFEROL [Concomitant]
     Indication: Bone disorder
  12. DECADRON [Concomitant]
     Active Substance: DEXAMETHASONE
     Indication: Product used for unknown indication
     Dosage: 0.5 MILLIGRAM, Q6H; 5 ML OF 0.1 MG/ML SOLUTION
     Route: 048
  13. FERROUS SULFATE [Concomitant]
     Active Substance: FERROUS SULFATE
     Indication: Product used for unknown indication
     Dosage: 325 MILLIGRAM, QOD
     Route: 048
  14. NEURONTIN [Concomitant]
     Active Substance: GABAPENTIN
     Indication: Restless legs syndrome
     Dosage: ,1-2 TABLETS300 MILLIGRAM
     Route: 048
  15. ICLUSIG [Concomitant]
     Active Substance: PONATINIB
     Indication: Product used for unknown indication
     Dosage: 15 MILLIGRAM, TIW
     Route: 048
  16. EMLA [Concomitant]
     Active Substance: LIDOCAINE\PRILOCAINE
     Indication: Product used for unknown indication
     Dosage: UNK
     Route: 061
  17. MS CONTIN [Concomitant]
     Active Substance: MORPHINE SULFATE
     Indication: Product used for unknown indication
     Dosage: 15 MILLIGRAM, Q12H
     Route: 048
  18. MYCOSTATIN [Concomitant]
     Active Substance: NYSTATIN
     Indication: Product used for unknown indication
     Dosage: UNK
  19. PRILOSEC [Concomitant]
     Active Substance: OMEPRAZOLE MAGNESIUM
     Indication: Product used for unknown indication
     Dosage: 40 MILLIGRAM, QD
     Route: 048
  20. DELTASONE [Concomitant]
     Active Substance: PREDNISONE
     Indication: Nausea
     Dosage: 8 MILLIGRAM, Q8H
     Route: 048
  21. DELTASONE [Concomitant]
     Active Substance: PREDNISONE
     Indication: Vomiting
  22. ROXICODONE [Concomitant]
     Active Substance: OXYCODONE HYDROCHLORIDE
     Indication: Pain
     Dosage: 5 MILLIGRAM, Q6H, PRN
     Route: 048
  23. LIDOCAINE [Concomitant]
     Active Substance: LIDOCAINE
     Indication: Analgesic therapy
     Dosage: 4 PERCENT, QD, 1-2 PATCHES
     Route: 061
  24. PENICILLIN V [Concomitant]
     Active Substance: PENICILLIN V
     Indication: Product used for unknown indication
     Dosage: 500 MILLIGRAM, QD
     Route: 048
  25. PREDNISONE [Concomitant]
     Active Substance: PREDNISONE
     Indication: Product used for unknown indication
     Dosage: 5 MILLIGRAM, BID
     Route: 048
     Dates: start: 20211130
  26. BRAIN [Concomitant]
     Indication: Product used for unknown indication
     Route: 048
  27. ZOFRAN [Concomitant]
     Active Substance: ONDANSETRON HYDROCHLORIDE
     Indication: Nausea
     Dosage: 8 MILLIGRAM, Q8H, AS NEEDED
     Route: 048
  28. ZOFRAN [Concomitant]
     Active Substance: ONDANSETRON HYDROCHLORIDE
     Indication: Vomiting

REACTIONS (15)
  - Nasopharyngitis [Unknown]
  - White blood cell count decreased [Recovering/Resolving]
  - Red blood cell count decreased [Recovering/Resolving]
  - Red cell distribution width increased [Not Recovered/Not Resolved]
  - Haematocrit decreased [Recovering/Resolving]
  - Blood immunoglobulin G decreased [Unknown]
  - Blood magnesium decreased [Recovered/Resolved]
  - Protein total decreased [Unknown]
  - Aspartate aminotransferase increased [Recovered/Resolved]
  - Cough [Recovered/Resolved]
  - Platelet count decreased [Recovering/Resolving]
  - Blood alkaline phosphatase increased [Recovered/Resolved]
  - Alanine aminotransferase increased [Recovered/Resolved]
  - Haemoglobin decreased [Recovering/Resolving]
  - Product dose omission issue [Unknown]

NARRATIVE: CASE EVENT DATE: 20211208
